FAERS Safety Report 17341178 (Version 1)
Quarter: 2020Q1

REPORT INFORMATION
  Report Type: Spontaneous
  Country: US (occurrence: US)
  Receive Date: 20200129
  Receipt Date: 20200129
  Transmission Date: 20200409
  Serious: No
  Sender: FDA-Public Use
  Company Number: US-SMITH AND NEPHEW, INC-2019SMT00020

PATIENT
  Sex: Male

DRUGS (1)
  1. REGRANEX [Suspect]
     Active Substance: BECAPLERMIN
     Indication: WOUND
     Dosage: APPLY A THIN LAYER TO THE AFFECTED AREA, 1X/DAY (FOR 12 HOURS ON AND 12 HOURS OFF)
     Route: 061

REACTIONS (2)
  - Erythema [Unknown]
  - Off label use [Recovered/Resolved]
